FAERS Safety Report 11599032 (Version 7)
Quarter: 2022Q4

REPORT INFORMATION
  Report Type: Spontaneous
  Country: US (occurrence: US)
  Receive Date: 20151006
  Receipt Date: 20221021
  Transmission Date: 20230113
  Serious: No
  Sender: FDA-Public Use
  Company Number: US-PFIZER INC-2015330789

PATIENT
  Age: 70 Year
  Sex: Female
  Weight: 54 kg

DRUGS (4)
  1. NORPACE [Suspect]
     Active Substance: DISOPYRAMIDE PHOSPHATE
     Indication: Arrhythmia
     Dosage: 100 MG, 3X/DAY
     Route: 048
  2. DISOPYRAMIDE PHOSPHATE [Concomitant]
     Active Substance: DISOPYRAMIDE PHOSPHATE
     Indication: Arrhythmia
     Dosage: 100 MG, 3X/DAY
  3. NORVASC [Concomitant]
     Active Substance: AMLODIPINE BESYLATE
     Indication: Hypertension
     Dosage: 5 MG, DAILY
  4. SYNTHROID [Concomitant]
     Active Substance: LEVOTHYROXINE SODIUM
     Indication: Hypothyroidism
     Dosage: UNK, 1X/DAY

REACTIONS (1)
  - Malaise [Unknown]
